FAERS Safety Report 11246687 (Version 1)
Quarter: 2015Q3

REPORT INFORMATION
  Report Type: Spontaneous
  Country: GB (occurrence: None)
  Receive Date: 20150706
  Receipt Date: 20150706
  Transmission Date: 20151125
  Serious: Yes (Disabling)
  Sender: FDA-Public Use
  Company Number: None

PATIENT
  Age: 44 Year
  Sex: Female
  Weight: 48.99 kg

DRUGS (1)
  1. CIPROFLOXACIN 500MG BAYER [Suspect]
     Active Substance: CIPROFLOXACIN
     Indication: URINARY TRACT INFECTION
     Route: 048
     Dates: start: 20150410, end: 20150422

REACTIONS (3)
  - Impaired work ability [None]
  - Activities of daily living impaired [None]
  - Adverse drug reaction [None]

NARRATIVE: CASE EVENT DATE: 20150410
